FAERS Safety Report 7218834-7 (Version None)
Quarter: 2011Q1

REPORT INFORMATION
  Report Type: 
  Country: None (occurrence: None)
  Receive Date: 20110110
  Receipt Date: 20101227
  Transmission Date: 20110831
  Serious: Yes (Other)
  Sender: FDA-Public Use
  Company Number: CN-GILEAD-E2B_00001013

PATIENT
  Age: 56 Year
  Sex: Male

DRUGS (2)
  1. LAMIVUDINE [Concomitant]
     Indication: HEPATITIS B
     Dates: start: 19990101
  2. ADEFOVIR DIPIVOXIL KIT [Suspect]
     Indication: HEPATITIS B
     Route: 048
     Dates: start: 20031001

REACTIONS (1)
  - THROMBOCYTOPENIA [None]
